FAERS Safety Report 5710513-8 (Version None)
Quarter: 2008Q2

REPORT INFORMATION
  Report Type: 
  Country: None (occurrence: None)
  Receive Date: 20080415
  Receipt Date: 20080403
  Transmission Date: 20081010
  Serious: Yes (Life-Threatening, Hospitalization, Other)
  Sender: FDA-Public Use
  Company Number: 46970

PATIENT
  Age: 48 Year
  Sex: Female

DRUGS (1)
  1. VECURONIUM BROMIDE [Suspect]
     Dates: start: 20080305

REACTIONS (2)
  - ANAESTHETIC COMPLICATION [None]
  - ANAPHYLACTIC REACTION [None]
